FAERS Safety Report 10536587 (Version 2)
Quarter: 2015Q1

REPORT INFORMATION
  Report Type: Report from Study
  Country: US (occurrence: US)
  Receive Date: 20141022
  Receipt Date: 20150122
  Transmission Date: 20150720
  Serious: Yes (Hospitalization, Other)
  Sender: FDA-Public Use
  Company Number: US-CELGENE-USA-2014100896

PATIENT
  Age: 63 Year
  Sex: Male
  Weight: 76.95 kg

DRUGS (1)
  1. REVLIMID [Suspect]
     Active Substance: LENALIDOMIDE
     Indication: PLASMA CELL MYELOMA
     Dosage: 15 MILLIGRAM
     Route: 048
     Dates: start: 20100322

REACTIONS (3)
  - Hypoxia [Unknown]
  - Acute kidney injury [Unknown]
  - Mental status changes [Unknown]

NARRATIVE: CASE EVENT DATE: 20100405
